FAERS Safety Report 6787783-0 (Version None)
Quarter: 2010Q2

REPORT INFORMATION
  Report Type: 
  Country: None (occurrence: None)
  Receive Date: 20100621
  Receipt Date: 20100608
  Transmission Date: 20101027
  Serious: Yes (Hospitalization)
  Sender: FDA-Public Use
  Company Number: 7000021

PATIENT
  Age: 49 Year
  Sex: Female

DRUGS (2)
  1. REBIF [Suspect]
     Indication: DRUG USE FOR UNKNOWN INDICATION
     Dosage: 44 MCG, 3 IN 1 D, SUBCUTANEOUS
     Route: 058
     Dates: start: 20070206, end: 20100101
  2. REBIF [Suspect]
     Indication: DRUG USE FOR UNKNOWN INDICATION
     Dosage: 44 MCG, 3 IN 1 D, SUBCUTANEOUS
     Route: 058
     Dates: start: 20100501

REACTIONS (4)
  - CHILLS [None]
  - DECUBITUS ULCER [None]
  - PYREXIA [None]
  - TREMOR [None]
